FAERS Safety Report 16765179 (Version 1)
Quarter: 2019Q3

REPORT INFORMATION
  Report Type: Spontaneous
  Country: US (occurrence: US)
  Receive Date: 20190903
  Receipt Date: 20190903
  Transmission Date: 20191005
  Serious: Yes (Hospitalization)
  Sender: FDA-Public Use
  Company Number: US-HORIZON-ACT-0238-2019

PATIENT
  Age: 10 Month
  Sex: Male

DRUGS (5)
  1. RIFAMPIN. [Concomitant]
     Active Substance: RIFAMPIN
  2. BACTRIM [Concomitant]
     Active Substance: SULFAMETHOXAZOLE\TRIMETHOPRIM
  3. ERYTHROMYCIN. [Concomitant]
     Active Substance: ERYTHROMYCIN
  4. ACTIMMUNE [Suspect]
     Active Substance: INTERFERON GAMMA-1B
     Indication: IMMUNODEFICIENCY
     Dosage: 20?G 3 TIMES WEEKLY
     Dates: end: 20190820
  5. ISONIAZID. [Concomitant]
     Active Substance: ISONIAZID

REACTIONS (3)
  - Condition aggravated [Unknown]
  - Off label use [Unknown]
  - Primary immunodeficiency syndrome [Unknown]
